FAERS Safety Report 21085518 (Version 1)
Quarter: 2022Q3

REPORT INFORMATION
  Report Type: Spontaneous
  Country: SE (occurrence: SE)
  Receive Date: 20220715
  Receipt Date: 20220715
  Transmission Date: 20221027
  Serious: Yes (Other)
  Sender: FDA-Public Use
  Company Number: None

PATIENT
  Age: 11 Year
  Sex: Female
  Weight: 56 kg

DRUGS (1)
  1. CONCERTA [Suspect]
     Active Substance: METHYLPHENIDATE HYDROCHLORIDE
     Indication: Attention deficit hyperactivity disorder
     Dosage: ANGIVEN STYRKA: 45 MG ANGIVEN DOS: 18 MG+27 MG PA MORGONEN
     Route: 048
     Dates: start: 20200901, end: 20210901

REACTIONS (1)
  - Trichotillomania [Recovered/Resolved]

NARRATIVE: CASE EVENT DATE: 20210316
